FAERS Safety Report 5750390-2 (Version None)
Quarter: 2008Q2

REPORT INFORMATION
  Report Type: 
  Country: None (occurrence: None)
  Receive Date: 20080523
  Receipt Date: 20080523
  Transmission Date: 20081010
  Serious: Yes (Life-Threatening, Hospitalization, Disabling)
  Sender: FDA-Public Use
  Company Number: None

PATIENT
  Age: 16 Year
  Sex: Female
  Weight: 49.4421 kg

DRUGS (1)
  1. YAZ [Suspect]
     Indication: MENSTRUATION IRREGULAR
     Dosage: ONE PILL DAILY PO
     Route: 048
     Dates: start: 20071111, end: 20071125

REACTIONS (3)
  - HEADACHE [None]
  - MUSCLE SPASMS [None]
  - THROMBOSIS [None]
